FAERS Safety Report 12270000 (Version 4)
Quarter: 2016Q2

REPORT INFORMATION
  Report Type: Spontaneous
  Country: US (occurrence: US)
  Receive Date: 20160415
  Receipt Date: 20160630
  Transmission Date: 20160815
  Serious: Yes (Death, Other)
  Sender: FDA-Public Use
  Company Number: US-009507513-1604USA009985

PATIENT
  Age: 57 Year
  Sex: Male
  Weight: 63.3 kg

DRUGS (10)
  1. COMPAZINE [Concomitant]
     Active Substance: PROCHLORPERAZINE MALEATE
  2. KEYTRUDA [Suspect]
     Active Substance: PEMBROLIZUMAB
     Indication: OESOPHAGEAL ADENOCARCINOMA
     Dosage: 127.5 MG, EVERY 3 WEEKS
     Route: 042
     Dates: start: 20160302
  3. CELEBREX [Concomitant]
     Active Substance: CELECOXIB
  4. SYNTHROID [Concomitant]
     Active Substance: LEVOTHYROXINE SODIUM
  5. ELIQUIS [Concomitant]
     Active Substance: APIXABAN
  6. KEYTRUDA [Suspect]
     Active Substance: PEMBROLIZUMAB
     Dosage: 127.5 MG, EVERY 3 WEEKS
     Route: 042
     Dates: start: 20160323
  7. ADVAIR HFA [Concomitant]
     Active Substance: FLUTICASONE PROPIONATE\SALMETEROL XINAFOATE
  8. PROTONIX [Concomitant]
     Active Substance: PANTOPRAZOLE SODIUM
  9. OXYCODONE [Concomitant]
     Active Substance: OXYCODONE
  10. ATIVAN [Concomitant]
     Active Substance: LORAZEPAM

REACTIONS (4)
  - Malignant neoplasm progression [Fatal]
  - Product use issue [Unknown]
  - Hypothyroidism [Fatal]
  - Anaemia [Fatal]

NARRATIVE: CASE EVENT DATE: 20160302
